FAERS Safety Report 9286759 (Version 1)
Quarter: 2012Q4

REPORT INFORMATION
  Report Type: Spontaneous
  Country: US (occurrence: None)
  Receive Date: 20120920
  Receipt Date: 20120920
  Transmission Date: 20130627
  Serious: Yes (Other)
  Sender: FDA-Public Use
  Company Number: JPI-P-024027

PATIENT
  Age: 27 Year
  Sex: Female

DRUGS (5)
  1. XYREM (500 MILLIGRAM/MILLILITERS, SOLUTION) (SODIUM OXYBATE) [Suspect]
     Indication: NARCOLEPSY
     Route: 048
     Dates: start: 20061019
  2. XYREM (500 MILLIGRAM/MILLILITERS, SOLUTION) (SODIUM OXYBATE) [Suspect]
     Indication: NARCOLEPSY
     Route: 048
  3. LAMOTRIGINE [Concomitant]
  4. ARMODAFINIL PSYCHOSTIMULANTS AND NOOTROPICS [Concomitant]
  5. SERTRALINE HYDROCHLORIDE [Concomitant]

REACTIONS (5)
  - Sleep apnoea syndrome [None]
  - Complex partial seizures [None]
  - Narcolepsy [None]
  - Pruritus [None]
  - Paraesthesia [None]
